FAERS Safety Report 7196879-3 (Version None)
Quarter: 2010Q4

REPORT INFORMATION
  Report Type: 
  Country: None (occurrence: None)
  Receive Date: 20101223
  Receipt Date: 20101207
  Transmission Date: 20110411
  Serious: No
  Sender: FDA-Public Use
  Company Number: US-AMGEN-KDL443139

PATIENT

DRUGS (1)
  1. ENBREL [Suspect]
     Indication: JUVENILE ARTHRITIS
     Dosage: 25 MG, QWK
     Route: 058
     Dates: start: 20100601

REACTIONS (2)
  - PAIN [None]
  - PYREXIA [None]
